FAERS Safety Report 8151355-6 (Version None)
Quarter: 2012Q1

REPORT INFORMATION
  Report Type: 
  Country: None (occurrence: None)
  Receive Date: 20120220
  Receipt Date: 20120210
  Transmission Date: 20120608
  Serious: Yes (Hospitalization, Other)
  Sender: FDA-Public Use
  Company Number: US-ELI_LILLY_AND_COMPANY-US201202003800

PATIENT
  Sex: Female

DRUGS (3)
  1. HUMALOG [Suspect]
     Indication: DIABETES MELLITUS
     Dosage: UNK
  2. LANTUS [Concomitant]
     Dosage: UNK
  3. HUMALOG [Suspect]
     Dosage: UNK

REACTIONS (7)
  - HYPOGLYCAEMIA UNAWARENESS [None]
  - HYPOGLYCAEMIC UNCONSCIOUSNESS [None]
  - BLOOD GLUCOSE INCREASED [None]
  - TREMOR [None]
  - FEELING ABNORMAL [None]
  - BLOOD GLUCOSE DECREASED [None]
  - MYOCARDIAL INFARCTION [None]
